FAERS Safety Report 6963032-5 (Version None)
Quarter: 2010Q3

REPORT INFORMATION
  Report Type: 
  Country: None (occurrence: None)
  Receive Date: 20100831
  Receipt Date: 20100824
  Transmission Date: 20110219
  Serious: Yes (Death)
  Sender: FDA-Public Use
  Company Number: DKLU1062724

PATIENT
  Age: 4 Month
  Sex: Female

DRUGS (2)
  1. SABRIL [Suspect]
     Indication: INFANTILE SPASMS
     Dosage: 250 MG MILLIGRAM(S), MORNING, ORAL,   500 MG MILLIGRAM(S), BEDTIME, ORAL
     Route: 048
     Dates: start: 20091101
  2. SABRIL [Suspect]
     Indication: INFANTILE SPASMS
     Dosage: 250 MG MILLIGRAM(S), MORNING, ORAL,   500 MG MILLIGRAM(S), BEDTIME, ORAL
     Route: 048
     Dates: start: 20091101

REACTIONS (4)
  - BRAIN STEM SYNDROME [None]
  - CARDIAC ARREST [None]
  - MITOCHONDRIAL MYOPATHY [None]
  - RESPIRATORY ARREST [None]
